FAERS Safety Report 8810375 (Version 1)
Quarter: 2012Q4

REPORT INFORMATION
  Report Type: 
  Country: US (occurrence: US)
  Receive Date: 20120926
  Receipt Date: 20120926
  Transmission Date: 20130627
  Serious: No
  Sender: FDA-Public Use
  Company Number: US-009507513-1209USA001062

PATIENT
  Sex: Male

DRUGS (3)
  1. PEGINTRON [Suspect]
     Dosage: 120 Microgram, qw
     Route: 058
     Dates: start: 20111018
  2. RIBAPAK [Suspect]
  3. INCIVEK [Suspect]

REACTIONS (1)
  - Drug intolerance [Unknown]
